FAERS Safety Report 18923698 (Version 4)
Quarter: 2021Q1

REPORT INFORMATION
  Report Type: Spontaneous
  Country: US (occurrence: US)
  Receive Date: 20210222
  Receipt Date: 20210331
  Transmission Date: 20210420
  Serious: Yes (Other)
  Sender: FDA-Public Use
  Company Number: US-JNJFOC-20210233679

PATIENT
  Age: 79 Year
  Sex: Female
  Weight: 68.1 kg

DRUGS (2)
  1. XARELTO [Suspect]
     Active Substance: RIVAROXABAN
     Indication: CEREBROVASCULAR ACCIDENT PROPHYLAXIS
  2. XARELTO [Suspect]
     Active Substance: RIVAROXABAN
     Indication: ATRIAL FIBRILLATION
     Dosage: USING FOR YEARS
     Route: 048

REACTIONS (5)
  - Drug ineffective [Unknown]
  - Chest pain [Unknown]
  - Product storage error [Unknown]
  - Poor quality product administered [Unknown]
  - Stress [Unknown]

NARRATIVE: CASE EVENT DATE: 20210218
